FAERS Safety Report 5529630-0 (Version None)
Quarter: 2007Q4

REPORT INFORMATION
  Report Type: 
  Country: None (occurrence: None)
  Receive Date: 20071129
  Receipt Date: 20071115
  Transmission Date: 20080405
  Serious: Yes (Life-Threatening)
  Sender: FDA-Public Use
  Company Number: FR-GENENTECH-251820

PATIENT
  Sex: Female

DRUGS (3)
  1. HERCEPTIN [Suspect]
     Indication: NEOPLASM MALIGNANT
     Dosage: 180 A?G, UNK
     Route: 042
     Dates: start: 20070619, end: 20070626
  2. CARBOPLATIN [Suspect]
     Indication: NEOPLASM MALIGNANT
     Dosage: 300 MG, UNK
     Route: 042
     Dates: start: 20070619, end: 20070626
  3. TAXOL [Suspect]
     Indication: NEOPLASM MALIGNANT
     Dosage: 160 MG, UNK
     Route: 042
     Dates: start: 20070619, end: 20070626

REACTIONS (6)
  - ENTERITIS LEUKOPENIC [None]
  - JEJUNAL PERFORATION [None]
  - PANCYTOPENIA [None]
  - SEPSIS [None]
  - SHOCK [None]
  - SMALL INTESTINAL HAEMORRHAGE [None]
